FAERS Safety Report 14325407 (Version 1)
Quarter: 2017Q4

REPORT INFORMATION
  Report Type: Spontaneous
  Country: US (occurrence: US)
  Receive Date: 20171223
  Receipt Date: 20171223
  Transmission Date: 20180321
  Serious: Yes (Hospitalization)
  Sender: FDA-Public Use
  Company Number: None

PATIENT
  Age: 63 Year
  Sex: Male

DRUGS (1)
  1. RIBASPHERE [Suspect]
     Active Substance: RIBAVIRIN

REACTIONS (1)
  - B-cell lymphoma [None]

NARRATIVE: CASE EVENT DATE: 20171223
